FAERS Safety Report 18323693 (Version 1)
Quarter: 2020Q3

REPORT INFORMATION
  Report Type: Report from Study
  Country: MX (occurrence: MX)
  Receive Date: 20200929
  Receipt Date: 20200929
  Transmission Date: 20201103
  Serious: Yes (Other)
  Sender: FDA-Public Use
  Company Number: NVSC2020MX262236

PATIENT
  Age: 73 Year
  Sex: Female

DRUGS (1)
  1. EXFORGE [Suspect]
     Active Substance: AMLODIPINE BESYLATE\VALSARTAN
     Indication: PRODUCT USED FOR UNKNOWN INDICATION
     Dosage: 320/5 MG (1/2 YEAR AGO, OR A LITTLE MORE)
     Route: 065

REACTIONS (3)
  - Suspected COVID-19 [Unknown]
  - Asthenia [Unknown]
  - Cough [Unknown]

NARRATIVE: CASE EVENT DATE: 20200923
